FAERS Safety Report 7975045-5 (Version None)
Quarter: 2011Q4

REPORT INFORMATION
  Report Type: 
  Country: None (occurrence: None)
  Receive Date: 20111213
  Receipt Date: 20111025
  Transmission Date: 20120403
  Serious: No
  Sender: FDA-Public Use
  Company Number: US-AMGEN-USASP2011055128

PATIENT
  Age: 52 Year
  Sex: Female

DRUGS (2)
  1. TREXALL [Concomitant]
     Dosage: 5 MG, QWK
     Dates: start: 20110901
  2. ENBREL [Suspect]
     Indication: RHEUMATOID ARTHRITIS
     Dosage: 50 MG, QWK
     Dates: start: 20021227

REACTIONS (3)
  - THERAPEUTIC RESPONSE DECREASED [None]
  - OEDEMA PERIPHERAL [None]
  - PAIN IN EXTREMITY [None]
